FAERS Safety Report 9649609 (Version 3)
Quarter: 2014Q1

REPORT INFORMATION
  Report Type: Report from Study
  Country: BR (occurrence: BR)
  Receive Date: 20131028
  Receipt Date: 20140321
  Transmission Date: 20141002
  Serious: Yes (Other)
  Sender: FDA-Public Use
  Company Number: BR-ROCHE-736126

PATIENT
  Sex: Female
  Weight: 90 kg

DRUGS (8)
  1. MABTHERA [Suspect]
     Indication: RHEUMATOID ARTHRITIS
     Dosage: FORM: INFUSION, DOSE: 500 MG/50 ML.
     Route: 042
  2. MABTHERA [Suspect]
     Route: 042
     Dates: start: 20120801, end: 20120815
  3. SPIRONOLACTONE [Concomitant]
     Route: 065
  4. DICLOFENAC [Concomitant]
     Route: 065
  5. ENALAPRIL [Concomitant]
     Route: 065
  6. CARVEDILOL [Concomitant]
     Route: 065
  7. FUROSEMIDE [Concomitant]
     Route: 065
  8. PREDNISONE [Concomitant]
     Route: 065

REACTIONS (7)
  - Pain in extremity [Not Recovered/Not Resolved]
  - Ill-defined disorder [Not Recovered/Not Resolved]
  - Pain in extremity [Not Recovered/Not Resolved]
  - Cardiac disorder [Not Recovered/Not Resolved]
  - Skin atrophy [Not Recovered/Not Resolved]
  - Myocardial oedema [Not Recovered/Not Resolved]
  - Arthralgia [Not Recovered/Not Resolved]
